FAERS Safety Report 9185624 (Version 2)
Quarter: 2013Q2

REPORT INFORMATION
  Report Type: Spontaneous
  Country: DE (occurrence: DE)
  Receive Date: 20130325
  Receipt Date: 20130509
  Transmission Date: 20140414
  Serious: Yes (Hospitalization, Other)
  Sender: FDA-Public Use
  Company Number: DE-US-EMD SERONO, INC.-7199650

PATIENT
  Age: 43 Year
  Sex: Female

DRUGS (1)
  1. REBIF [Suspect]
     Indication: MULTIPLE SCLEROSIS
     Route: 058
     Dates: start: 20110328, end: 201304

REACTIONS (3)
  - Breast cancer [Not Recovered/Not Resolved]
  - Optic neuritis [Not Recovered/Not Resolved]
  - Spinal disorder [Not Recovered/Not Resolved]
